FAERS Safety Report 4613693-0 (Version None)
Quarter: 2005Q1

REPORT INFORMATION
  Report Type: 
  Country: None (occurrence: None)
  Receive Date: 20050318
  Receipt Date: 20050318
  Transmission Date: 20050727
  Serious: No
  Sender: FDA-Public Use
  Company Number: None

PATIENT
  Age: 78 Year
  Sex: Male
  Weight: 76.6579 kg

DRUGS (2)
  1. LORAZEPAM [Suspect]
     Indication: AGITATION
     Dosage: 1-2 MG IV PUSH Q 2HR PRN
     Route: 042
     Dates: start: 20041023, end: 20041026
  2. OXYCODONE [Concomitant]

REACTIONS (2)
  - HYPERCAPNIA [None]
  - RESPIRATORY RATE INCREASED [None]
